FAERS Safety Report 14996325 (Version 1)
Quarter: 2018Q2

REPORT INFORMATION
  Report Type: Spontaneous
  Country: FR (occurrence: FR)
  Receive Date: 20180611
  Receipt Date: 20180611
  Transmission Date: 20180711
  Serious: Yes (Hospitalization)
  Sender: FDA-Public Use
  Company Number: FR-ELI_LILLY_AND_COMPANY-FR201805014853

PATIENT
  Age: 45 Year
  Sex: Female
  Weight: 87 kg

DRUGS (2)
  1. ZYPREXA [Suspect]
     Active Substance: OLANZAPINE
     Indication: TOXICITY TO VARIOUS AGENTS
     Dosage: 35 MG, UNKNOWN
     Route: 048
     Dates: start: 20180514, end: 20180514
  2. TERALITHE [Suspect]
     Active Substance: LITHIUM CARBONATE
     Indication: TOXICITY TO VARIOUS AGENTS
     Dosage: 12 DF, UNKNOWN
     Route: 048
     Dates: start: 20180514, end: 20180514

REACTIONS (5)
  - Overdose [Unknown]
  - Off label use [Unknown]
  - Antipsychotic drug level increased [Recovering/Resolving]
  - Toxicity to various agents [Recovered/Resolved]
  - Vomiting [Recovered/Resolved]

NARRATIVE: CASE EVENT DATE: 20180514
